FAERS Safety Report 15041374 (Version 1)
Quarter: 2018Q2

REPORT INFORMATION
  Report Type: Spontaneous
  Country: US (occurrence: US)
  Receive Date: 20180621
  Receipt Date: 20180621
  Transmission Date: 20180711
  Serious: Yes (Life-Threatening, Hospitalization)
  Sender: FDA-Public Use
  Company Number: US-CIPLA LTD.-2017US14107

PATIENT

DRUGS (6)
  1. ESCITALOPRAM [Suspect]
     Active Substance: ESCITALOPRAM OXALATE
     Indication: DEPRESSION
     Dosage: 10 MG, PER DAY
     Route: 065
  2. DEXTROMETHORPHAN W/PROMETHAZINE [Interacting]
     Active Substance: DEXTROMETHORPHAN\PROMETHAZINE
     Indication: CHEST DISCOMFORT
     Dosage: UNK, 5 DAYS
     Route: 065
  3. LABETALOL [Concomitant]
     Active Substance: LABETALOL\LABETALOL HYDROCHLORIDE
     Indication: PRODUCT USED FOR UNKNOWN INDICATION
     Dosage: 100 MG, PER DAY
     Route: 065
  4. DEXTROMETHORPHAN W/PROMETHAZINE [Interacting]
     Active Substance: DEXTROMETHORPHAN\PROMETHAZINE
     Indication: UPPER RESPIRATORY TRACT INFECTION
  5. AMLODIPINE [Concomitant]
     Active Substance: AMLODIPINE BESYLATE
     Indication: PRODUCT USED FOR UNKNOWN INDICATION
     Dosage: 5 MG, BID
     Route: 065
  6. NALTREXONE [Concomitant]
     Active Substance: NALTREXONE
     Indication: ALCOHOL DETOXIFICATION
     Dosage: UNK
     Route: 030

REACTIONS (7)
  - Sleep talking [Unknown]
  - Electrocardiogram QT prolonged [Recovered/Resolved]
  - Serotonin syndrome [Recovered/Resolved]
  - Decreased appetite [Unknown]
  - Drug interaction [Unknown]
  - Poor quality sleep [Unknown]
  - Atrioventricular block first degree [Recovered/Resolved]
